FAERS Safety Report 5766761-4 (Version None)
Quarter: 2008Q2

REPORT INFORMATION
  Report Type: 
  Country: None (occurrence: None)
  Receive Date: 20080610
  Receipt Date: 20080610
  Transmission Date: 20081010
  Serious: Yes (Other)
  Sender: FDA-Public Use
  Company Number: None

PATIENT
  Age: 53 Year
  Sex: Female
  Weight: 73.4827 kg

DRUGS (2)
  1. BOTOX [Suspect]
     Indication: SKIN COSMETIC PROCEDURE
     Dates: start: 20080512, end: 20080512
  2. JUVEDERM [Concomitant]

REACTIONS (4)
  - DIPLOPIA [None]
  - EYELID PTOSIS [None]
  - INJECTION SITE ERYTHEMA [None]
  - LACRIMATION INCREASED [None]
